FAERS Safety Report 10201054 (Version 3)
Quarter: 2014Q2

REPORT INFORMATION
  Report Type: Spontaneous
  Country: US (occurrence: US)
  Receive Date: 20140528
  Receipt Date: 20140618
  Transmission Date: 20141212
  Serious: Yes (Life-Threatening, Other)
  Sender: FDA-Public Use
  Company Number: PHEH2014US009756

PATIENT
  Age: 57 Year
  Sex: Female

DRUGS (13)
  1. TEKTURNA [Suspect]
     Indication: HYPERTENSION
     Dosage: 300 MG, QD
     Dates: start: 20090102, end: 20090103
  2. TEKTURNA [Suspect]
     Dosage: 150 MG, BID (1 IN THE MORNING AND 1 AT NIGHT)
     Route: 048
  3. ISOSORBIDE MONONITRATE [Suspect]
     Dosage: UNK UKN, UNK
  4. LASIX [Concomitant]
     Dosage: UNK UKN, UNK
  5. ALPRAZOLAM [Concomitant]
     Dosage: UNK UKN, UNK
  6. NORTRIPTYLINE [Concomitant]
     Dosage: UNK UKN, UNK
  7. GLUMETZA [Concomitant]
     Dosage: UNK UKN, UNK
  8. ASPIRIN [Concomitant]
     Dosage: UNK UKN, UNK
  9. RESVERATROL [Concomitant]
     Dosage: UNK UKN, UNK
  10. VITAMIN D [Concomitant]
     Dosage: UNK UKN, UNK
  11. CATAPRES                                /UNK/ [Concomitant]
     Dosage: UNK UKN, UNK
     Dates: start: 2009
  12. CLONIDINE [Concomitant]
     Dosage: UNK UKN, UNK
     Dates: start: 2009
  13. HYDROCHLOROTHIAZIDE [Concomitant]
     Indication: HYPERTENSION
     Dosage: 12.5 MG, QD
     Route: 048
     Dates: start: 20080112, end: 20120101

REACTIONS (20)
  - Feeling abnormal [Unknown]
  - Diabetes mellitus [Unknown]
  - Drug dependence [Unknown]
  - Muscle rigidity [Recovered/Resolved]
  - Lacrimation increased [Unknown]
  - Ocular hyperaemia [Unknown]
  - Neck pain [Unknown]
  - Pain [Unknown]
  - Arthritis [Unknown]
  - Dry mouth [Unknown]
  - Limb discomfort [Unknown]
  - Pigmentation disorder [Unknown]
  - Burning sensation [Unknown]
  - Low density lipoprotein increased [Unknown]
  - Pain in extremity [Unknown]
  - Back pain [Unknown]
  - Urticaria [Unknown]
  - Oedema peripheral [Unknown]
  - Blood pressure inadequately controlled [Unknown]
  - Blood pressure abnormal [Unknown]
